FAERS Safety Report 7570070-0 (Version None)
Quarter: 2011Q2

REPORT INFORMATION
  Report Type: 
  Country: None (occurrence: None)
  Receive Date: 20110622
  Receipt Date: 20110622
  Transmission Date: 20111010
  Serious: Yes (Other)
  Sender: FDA-Public Use
  Company Number: None

PATIENT
  Age: 64 Year
  Sex: Male
  Weight: 83 kg

DRUGS (14)
  1. AMLODIPINE [Concomitant]
  2. MULTIVIT [Concomitant]
  3. OMEPRAZOLE [Concomitant]
  4. VORICONAZOLE [Concomitant]
  5. FEXOFENADINE [Concomitant]
  6. DOXYCYCLINE [Concomitant]
  7. ACYCLOVIR [Concomitant]
  8. DOXYCYCLINE [Concomitant]
  9. DEXAMETHASONE [Concomitant]
  10. PRIVIGEN [Suspect]
     Indication: THROMBOCYTOPENIA
     Dosage: 80 GRAMS ONCE IV
     Route: 042
     Dates: start: 20110414, end: 20110414
  11. CALCIUM CARBONATE [Concomitant]
  12. PROCHLORPERAZINE TAB [Concomitant]
  13. DOCUSATE [Concomitant]
  14. PENTAMIDINE ISETHIONATE [Concomitant]

REACTIONS (3)
  - NO THERAPEUTIC RESPONSE [None]
  - HAEMOLYSIS [None]
  - ANTIBODY TEST POSITIVE [None]
